FAERS Safety Report 13114913 (Version 1)
Quarter: 2017Q1

REPORT INFORMATION
  Report Type: Spontaneous
  Country: TW (occurrence: TW)
  Receive Date: 20170113
  Receipt Date: 20170113
  Transmission Date: 20170428
  Serious: Yes (Hospitalization)
  Sender: FDA-Public Use
  Company Number: TW-SA-2017SA002647

PATIENT
  Age: 60 Year
  Sex: Male

DRUGS (2)
  1. ISONIAZID. [Suspect]
     Active Substance: ISONIAZID
     Indication: TUBERCULOSIS
     Route: 048
     Dates: start: 20161209, end: 20161223
  2. PRIFTIN [Suspect]
     Active Substance: RIFAPENTINE
     Indication: TUBERCULOSIS
     Route: 048
     Dates: start: 20161209, end: 20161223

REACTIONS (9)
  - Pyrexia [Unknown]
  - Haematochezia [Unknown]
  - Hepatitis acute [Unknown]
  - Intestinal haemorrhage [Unknown]
  - Abdominal discomfort [Unknown]
  - Fatigue [Unknown]
  - Chills [Unknown]
  - Abdominal pain [Unknown]
  - Jaundice [Unknown]

NARRATIVE: CASE EVENT DATE: 20161209
